FAERS Safety Report 6191284-0 (Version None)
Quarter: 2009Q2

REPORT INFORMATION
  Report Type: 
  Country: None (occurrence: None)
  Receive Date: 20090513
  Receipt Date: 20090513
  Transmission Date: 20091009
  Serious: Yes (Hospitalization, Disabling, Other)
  Sender: FDA-Public Use
  Company Number: None

PATIENT
  Age: 55 Year
  Sex: Female
  Weight: 46.7205 kg

DRUGS (1)
  1. VYTORIN [Suspect]
     Indication: BLOOD CHOLESTEROL ABNORMAL
     Dosage: 10/80 ONE AT BEDTIME AT LEAST 12 OR 16 MO'S

REACTIONS (4)
  - DYSSTASIA [None]
  - LIVER FUNCTION TEST ABNORMAL [None]
  - MOTOR DYSFUNCTION [None]
  - MUSCULAR WEAKNESS [None]
